FAERS Safety Report 10717784 (Version 2)
Quarter: 2016Q1

REPORT INFORMATION
  Report Type: Spontaneous
  Country: US (occurrence: US)
  Receive Date: 20150116
  Receipt Date: 20160224
  Transmission Date: 20160525
  Serious: Yes (Hospitalization)
  Sender: FDA-Public Use
  Company Number: US-009507513-1501USA002166

PATIENT
  Age: 35 Year
  Sex: Male

DRUGS (7)
  1. ALLEGRA [Concomitant]
     Active Substance: FEXOFENADINE HYDROCHLORIDE
  2. SYMBICORT [Concomitant]
     Active Substance: BUDESONIDE\FORMOTEROL FUMARATE DIHYDRATE
  3. NIASPAN [Concomitant]
     Active Substance: NIACIN
  4. NASONEX [Suspect]
     Active Substance: MOMETASONE FUROATE
     Indication: NASAL POLYPS
  5. NASONEX [Suspect]
     Active Substance: MOMETASONE FUROATE
     Indication: RHINITIS ALLERGIC
     Dosage: 50MCG 2 SPRAYS IN EACH NOSTRIL ONCE DAILY
     Route: 045
  6. XARELTO [Concomitant]
     Active Substance: RIVAROXABAN
  7. RELPAX [Concomitant]
     Active Substance: ELETRIPTAN HYDROBROMIDE

REACTIONS (12)
  - Feeling hot [Unknown]
  - Dyspnoea [Unknown]
  - Vomiting [Unknown]
  - Thrombosis [Unknown]
  - Erythema [Unknown]
  - Drug dose omission [Unknown]
  - Flushing [Unknown]
  - Lacrimation increased [Not Recovered/Not Resolved]
  - Pyrexia [Unknown]
  - Chest discomfort [Unknown]
  - Product odour abnormal [Unknown]
  - Hypersensitivity [Not Recovered/Not Resolved]

NARRATIVE: CASE EVENT DATE: 201501
